FAERS Safety Report 17913982 (Version 1)
Quarter: 2020Q2

REPORT INFORMATION
  Report Type: Spontaneous
  Country: US (occurrence: US)
  Receive Date: 20200618
  Receipt Date: 20200618
  Transmission Date: 20200714
  Serious: No
  Sender: FDA-Public Use
  Company Number: US-ROCHE-2576335

PATIENT
  Age: 37 Year
  Sex: Male

DRUGS (1)
  1. XOFLUZA [Suspect]
     Active Substance: BALOXAVIR MARBOXIL
     Indication: INFLUENZA
     Dosage: UNKNOWN
     Route: 065
     Dates: start: 20200322

REACTIONS (3)
  - Dehydration [Unknown]
  - Stomatitis [Unknown]
  - Urticaria [Unknown]

NARRATIVE: CASE EVENT DATE: 20200323
